FAERS Safety Report 9844702 (Version 1)
Quarter: 2014Q1

REPORT INFORMATION
  Report Type: Spontaneous
  Country: BR (occurrence: BR)
  Receive Date: 20140127
  Receipt Date: 20140127
  Transmission Date: 20141002
  Serious: Yes (Life-Threatening, Other)
  Sender: FDA-Public Use
  Company Number: BR-BAYER-2014-008271

PATIENT
  Age: 31 Year
  Sex: Female
  Weight: 112 kg

DRUGS (2)
  1. YASMIN [Suspect]
     Indication: CONTRACEPTION
     Dosage: 1 DF, QD
     Route: 048
     Dates: start: 2011, end: 201311
  2. SYNTHROID [Concomitant]
     Indication: HYPERTHYROIDISM
     Dosage: 1 DF, QD
     Route: 048

REACTIONS (5)
  - Pre-eclampsia [Not Recovered/Not Resolved]
  - Pregnancy on oral contraceptive [Not Recovered/Not Resolved]
  - Drug ineffective [None]
  - Vomiting [None]
  - Diarrhoea [None]
